FAERS Safety Report 9887159 (Version 1)
Quarter: 2014Q1

REPORT INFORMATION
  Report Type: Spontaneous
  Country: US (occurrence: US)
  Receive Date: 20140211
  Receipt Date: 20140211
  Transmission Date: 20141002
  Serious: Yes (Hospitalization)
  Sender: FDA-Public Use
  Company Number: US-BEH-2014040464

PATIENT
  Sex: Female

DRUGS (1)
  1. PRIVIGEN [Suspect]
     Indication: PLATELET COUNT DECREASED

REACTIONS (1)
  - Investigation [Unknown]
